FAERS Safety Report 8023838-0 (Version None)
Quarter: 2011Q4

REPORT INFORMATION
  Report Type: 
  Country: None (occurrence: None)
  Receive Date: 20111130
  Receipt Date: 20110121
  Transmission Date: 20120403
  Serious: Yes (Hospitalization)
  Sender: FDA-Public Use
  Company Number: 319488

PATIENT
  Age: 44 Year
  Sex: Female
  Weight: 86.2 kg

DRUGS (5)
  1. NOVOLOG [Suspect]
     Indication: TYPE 1 DIABETES MELLITUS
     Dosage: SLIDING SCALE, SUBCUTANEOUS; SLIDING SCALE, SUBCUTANEOUS
     Route: 058
     Dates: start: 20080101, end: 20101123
  2. NOVOLOG [Suspect]
     Indication: TYPE 1 DIABETES MELLITUS
     Dosage: SLIDING SCALE, SUBCUTANEOUS; SLIDING SCALE, SUBCUTANEOUS
     Route: 058
     Dates: start: 20101202
  3. LEVEMIR [Concomitant]
  4. TOPROL (METOPROLOL SUCCINAE) [Concomitant]
  5. GLUCOPHAGE [Concomitant]

REACTIONS (2)
  - DEVICE MALFUNCTION [None]
  - BLOOD GLUCOSE INCREASED [None]
